FAERS Safety Report 16133937 (Version 1)
Quarter: 2019Q1

REPORT INFORMATION
  Report Type: Spontaneous
  Country: US (occurrence: US)
  Receive Date: 20190329
  Receipt Date: 20190329
  Transmission Date: 20190418
  Serious: No
  Sender: FDA-Public Use
  Company Number: US-MYLANLABS-2019M1021258

PATIENT

DRUGS (1)
  1. NORETHINDRONE TABLETS, USP [Suspect]
     Active Substance: NORETHINDRONE
     Indication: CONTRACEPTION
     Dosage: 0.35 MILLIGRAM
     Route: 048

REACTIONS (2)
  - Metrorrhagia [Recovered/Resolved]
  - Maternal exposure during breast feeding [Not Recovered/Not Resolved]

NARRATIVE: CASE EVENT DATE: 20181126
